FAERS Safety Report 7308810-8 (Version None)
Quarter: 2011Q1

REPORT INFORMATION
  Report Type: 
  Country: None (occurrence: None)
  Receive Date: 20110223
  Receipt Date: 20110214
  Transmission Date: 20110831
  Serious: Yes (Hospitalization)
  Sender: FDA-Public Use
  Company Number: PHHY2011VE13200

PATIENT
  Sex: Male

DRUGS (6)
  1. PREDNISONE [Suspect]
     Dosage: 15 MG, QD
  2. TRILEPTAL [Suspect]
     Indication: TREMOR
     Dosage: 0.5 DF, UNK
     Route: 048
     Dates: start: 20030101
  3. PREDNISONE [Suspect]
     Dosage: 20 MG, QD
  4. SYMMETREL [Suspect]
     Indication: FATIGUE
     Dosage: UNK
     Route: 048
     Dates: start: 20010101
  5. CALCIUM [Concomitant]
     Indication: HYPERTENSION
     Dosage: UNK
  6. PREDNISONE [Suspect]
     Dosage: 50 MG, QD

REACTIONS (1)
  - MENINGITIS [None]
